FAERS Safety Report 16741854 (Version 7)
Quarter: 2021Q4

REPORT INFORMATION
  Report Type: Other
  Country: CA (occurrence: CA)
  Receive Date: 20190826
  Receipt Date: 20211104
  Transmission Date: 20220303
  Serious: No
  Sender: FDA-Public Use
  Company Number: CA-MAYNE PHARMA-2019MYN000666

PATIENT
  Sex: Female

DRUGS (1)
  1. ERYTHROMYCIN [Suspect]
     Active Substance: ERYTHROMYCIN
     Indication: Premature rupture of membranes
     Dosage: UNK
     Route: 064

REACTIONS (1)
  - Exposure during pregnancy [Unknown]
